FAERS Safety Report 10232922 (Version 1)
Quarter: 2014Q2

REPORT INFORMATION
  Report Type: Report from Study
  Country: US (occurrence: US)
  Receive Date: 20140612
  Receipt Date: 20140612
  Transmission Date: 20141212
  Serious: Yes (Hospitalization)
  Sender: FDA-Public Use
  Company Number: US-BAYER-2014-083040

PATIENT
  Age: 72 Year
  Sex: Female

DRUGS (1)
  1. ADEMPAS [Suspect]
     Indication: PULMONARY ARTERIAL HYPERTENSION
     Dosage: ^LOWEST DOSE^, 1X DAY

REACTIONS (4)
  - Nausea [None]
  - Dizziness [None]
  - Dyspnoea [None]
  - Renal impairment [None]
